FAERS Safety Report 24929326 (Version 3)
Quarter: 2025Q1

REPORT INFORMATION
  Report Type: Report from Study
  Country: PR (occurrence: PR)
  Receive Date: 20250205
  Receipt Date: 20250327
  Transmission Date: 20250409
  Serious: Yes (Hospitalization)
  Sender: ABBVIE
  Company Number: PR-ABBVIE-6067542

PATIENT
  Age: 66 Year
  Sex: Male

DRUGS (7)
  1. VENCLEXTA [Suspect]
     Active Substance: VENETOCLAX
     Indication: Acute myeloid leukaemia
     Dosage: LAST ADMIN DATE: DEC 2024
     Route: 048
     Dates: start: 20241213
  2. VENCLEXTA [Suspect]
     Active Substance: VENETOCLAX
     Indication: Acute myeloid leukaemia
     Route: 048
     Dates: start: 20241226
  3. LEVAQUIN [Concomitant]
     Active Substance: LEVOFLOXACIN
     Indication: Product used for unknown indication
     Route: 048
  4. ACYCLOVIR [Concomitant]
     Active Substance: ACYCLOVIR
     Indication: Product used for unknown indication
     Route: 048
  5. FLUCONAZOLE [Concomitant]
     Active Substance: FLUCONAZOLE
     Indication: Product used for unknown indication
     Route: 048
  6. REMERON [Concomitant]
     Active Substance: MIRTAZAPINE
     Indication: Product used for unknown indication
     Route: 048
  7. VIDAZA [Suspect]
     Active Substance: AZACITIDINE
     Indication: Product used for unknown indication
     Route: 065

REACTIONS (9)
  - Transplant [Unknown]
  - White blood cell count decreased [Recovering/Resolving]
  - Platelet count decreased [Recovering/Resolving]
  - Haemoglobin decreased [Recovering/Resolving]
  - Fatigue [Unknown]
  - Contusion [Unknown]
  - Transplant rejection [Unknown]
  - Skin ulcer [Recovering/Resolving]
  - Pain [Unknown]

NARRATIVE: CASE EVENT DATE: 20240101
